FAERS Safety Report 7587732-1 (Version None)
Quarter: 2011Q3

REPORT INFORMATION
  Report Type: 
  Country: None (occurrence: None)
  Receive Date: 20110704
  Receipt Date: 20110622
  Transmission Date: 20111222
  Serious: Yes (Other)
  Sender: FDA-Public Use
  Company Number: US-AMGEN-USASP2011032168

PATIENT
  Age: 95 Year
  Sex: Female

DRUGS (6)
  1. CALCIUM WITH VITAMIN D             /00944201/ [Concomitant]
  2. PROLIA [Suspect]
     Indication: OSTEOPOROSIS POSTMENOPAUSAL
     Dosage: 60 MG, Q6MO
     Dates: start: 20110602
  3. MAGNESIUM OXIDE [Concomitant]
  4. BYSTOLIC [Concomitant]
  5. CADUET [Concomitant]
  6. ZOLPIDEM [Concomitant]

REACTIONS (3)
  - SWELLING FACE [None]
  - DYSPHONIA [None]
  - RASH MACULAR [None]
